FAERS Safety Report 13133123 (Version 1)
Quarter: 2017Q1

REPORT INFORMATION
  Report Type: Spontaneous
  Country: US (occurrence: US)
  Receive Date: 20170118
  Receipt Date: 20170118
  Transmission Date: 20170428
  Serious: Yes (Hospitalization)
  Sender: FDA-Public Use
  Company Number: None

PATIENT
  Age: 77 Year
  Sex: Female

DRUGS (13)
  1. TIZANIDINE. [Concomitant]
     Active Substance: TIZANIDINE
  2. DOCUSATE [Concomitant]
     Active Substance: DOCUSATE
  3. LEVOTHYROXINE. [Concomitant]
     Active Substance: LEVOTHYROXINE
  4. LACTULOSE. [Concomitant]
     Active Substance: LACTULOSE
  5. LOSARTAN. [Concomitant]
     Active Substance: LOSARTAN
  6. OMEPRAZOLE. [Concomitant]
     Active Substance: OMEPRAZOLE
  7. CINACALCET [Concomitant]
     Active Substance: CINACALCET
  8. DILTIAZEM. [Concomitant]
     Active Substance: DILTIAZEM
  9. LETAIRIS [Suspect]
     Active Substance: AMBRISENTAN
     Indication: HEART DISEASE CONGENITAL
     Route: 048
     Dates: start: 200811
  10. FUROSEMIDE. [Concomitant]
     Active Substance: FUROSEMIDE
  11. TREPROSTINIL [Concomitant]
     Active Substance: TREPROSTINIL
  12. SENNOSIDES. [Concomitant]
     Active Substance: SENNOSIDES
  13. SILDENAFIL. [Concomitant]
     Active Substance: SILDENAFIL

REACTIONS (3)
  - Iron deficiency anaemia [None]
  - Rectal haemorrhage [None]
  - Abdominal pain [None]

NARRATIVE: CASE EVENT DATE: 20161221
